FAERS Safety Report 10077282 (Version 1)
Quarter: 2014Q2

REPORT INFORMATION
  Report Type: Spontaneous
  Country: US (occurrence: US)
  Receive Date: 20140414
  Receipt Date: 20140414
  Transmission Date: 20141212
  Serious: No
  Sender: FDA-Public Use
  Company Number: US-BANPHARM-20131243

PATIENT
  Age: 62 Year
  Sex: Male
  Weight: 99.77 kg

DRUGS (1)
  1. NAPROXEN SODIUM 220 MG [Suspect]
     Indication: PAIN
     Dosage: 1 DF, PRN,
     Route: 048
     Dates: start: 201303, end: 201303

REACTIONS (1)
  - Headache [Recovered/Resolved]
